FAERS Safety Report 4263788-9 (Version None)
Quarter: 2004Q1

REPORT INFORMATION
  Report Type: 
  Country: None (occurrence: None)
  Receive Date: 20040102
  Receipt Date: 20030929
  Transmission Date: 20041129
  Serious: Yes (Death, Hospitalization)
  Sender: FDA-Public Use
  Company Number: 2003-BP-07295BP

PATIENT
  Age: 52 Year
  Sex: Male

DRUGS (6)
  1. CLONIDINE HYDROCHLORIDE TABLETS (CLONIDINE) [Suspect]
     Indication: HYPERTENSION
     Dosage: 0.2 MG (0.1 MG), PO
     Route: 048
     Dates: start: 20030909, end: 20030929
  2. LABETALOL HCL [Suspect]
     Indication: HYPERTENSION
     Dates: start: 20030909
  3. INSULIN [Concomitant]
  4. LASIX [Concomitant]
  5. TUMS (TUMS/OLD FORM/) [Concomitant]
  6. TYLENOL [Concomitant]

REACTIONS (15)
  - BLADDER DISORDER [None]
  - BLOOD CREATININE ABNORMAL [None]
  - BLOOD GLUCOSE INCREASED [None]
  - BLOOD UREA ABNORMAL [None]
  - DIALYSIS [None]
  - DIARRHOEA [None]
  - FATIGUE [None]
  - HEADACHE [None]
  - MEMORY IMPAIRMENT [None]
  - MENTAL STATUS CHANGES [None]
  - NAUSEA [None]
  - PLASMAPHERESIS [None]
  - THROMBOTIC THROMBOCYTOPENIC PURPURA [None]
  - URINARY TRACT INFECTION [None]
  - VOMITING [None]
